FAERS Safety Report 20043800 (Version 2)
Quarter: 2021Q4

REPORT INFORMATION
  Report Type: Spontaneous
  Country: US (occurrence: US)
  Receive Date: 20211108
  Receipt Date: 20211211
  Transmission Date: 20220303
  Serious: Yes (Death, Other)
  Sender: FDA-Public Use
  Company Number: US-LUPIN PHARMACEUTICALS INC.-2021-21322

PATIENT
  Age: 77 Year
  Sex: Female
  Weight: 80.28 kg

DRUGS (1)
  1. HYDROCHLOROTHIAZIDE\IRBESARTAN [Suspect]
     Active Substance: HYDROCHLOROTHIAZIDE\IRBESARTAN
     Indication: Blood pressure abnormal
     Dosage: UNK UNK, BID
     Route: 065
     Dates: start: 2019

REACTIONS (3)
  - Pancreatic carcinoma [Fatal]
  - Manufacturing materials issue [Unknown]
  - Recalled product administered [Unknown]
